FAERS Safety Report 9283840 (Version 1)
Quarter: 2013Q2

REPORT INFORMATION
  Report Type: Spontaneous
  Country: US (occurrence: None)
  Receive Date: 20130506
  Receipt Date: 20130506
  Transmission Date: 20140414
  Serious: Yes (Life-Threatening, Other)
  Sender: FDA-Public Use
  Company Number: 201304000118

PATIENT
  Age: 44 Year
  Sex: Male

DRUGS (1)
  1. INOMAX [Suspect]
     Dosage: 40 PPM, CONTINUOUS, INHALATION
     Route: 055
     Dates: start: 20130423

REACTIONS (7)
  - Cardiac arrest [None]
  - Ventricular fibrillation [None]
  - Blood pressure decreased [None]
  - Oxygen saturation decreased [None]
  - Off label use [None]
  - Device failure [None]
  - Cardio-respiratory arrest [None]
